FAERS Safety Report 7898686-2 (Version None)
Quarter: 2011Q4

REPORT INFORMATION
  Report Type: 
  Country: None (occurrence: None)
  Receive Date: 20111101
  Receipt Date: 20110201
  Transmission Date: 20120403
  Serious: Yes (Other)
  Sender: FDA-Public Use
  Company Number: 264455USA

PATIENT
  Sex: Female

DRUGS (2)
  1. CITALOPRAM HYDROBROMIDE [Concomitant]
  2. CLONAZEPAM [Suspect]
     Indication: PANIC DISORDER
     Dosage: 1.5 MG (0.5 MG, 3 IN 1 D),

REACTIONS (3)
  - PANIC DISORDER [None]
  - WITHDRAWAL SYNDROME [None]
  - DRUG INEFFECTIVE [None]
